FAERS Safety Report 10343186 (Version 3)
Quarter: 2014Q3

REPORT INFORMATION
  Report Type: Report from Study
  Country: CZ (occurrence: CZ)
  Receive Date: 20140725
  Receipt Date: 20140815
  Transmission Date: 20150326
  Serious: Yes (Hospitalization)
  Sender: FDA-Public Use
  Company Number: CZ-PFIZER INC-2014076219

PATIENT
  Age: 61 Year
  Sex: Male
  Weight: 63.9 kg

DRUGS (2)
  1. TEMSIROLIMUS [Suspect]
     Active Substance: TEMSIROLIMUS
     Indication: MANTLE CELL LYMPHOMA
     Dosage: 15 MG / ARM A AFTER 175 MG DOSE THEN ONCE WEEKLY  (75 MG WEEKLY)
     Route: 042
  2. ZINNAT [Concomitant]
     Active Substance: CEFUROXIME AXETIL
     Indication: OTITIS MEDIA
     Dosage: 500 MG, 2X/DAY
     Route: 048
     Dates: start: 20140306, end: 20140310

REACTIONS (2)
  - Hiccups [Recovered/Resolved]
  - Decreased appetite [Recovered/Resolved]

NARRATIVE: CASE EVENT DATE: 20140305
